FAERS Safety Report 8047647-1 (Version None)
Quarter: 2012Q1

REPORT INFORMATION
  Report Type: 
  Country: None (occurrence: None)
  Receive Date: 20120116
  Receipt Date: 20120113
  Transmission Date: 20120608
  Serious: No
  Sender: FDA-Public Use
  Company Number: US-BAYER-2012-004480

PATIENT
  Age: 68 Year
  Sex: Male

DRUGS (4)
  1. TOPROL-XL [Concomitant]
  2. PRILOSEC [Concomitant]
  3. FLOMAX [Concomitant]
  4. STAXYN [Suspect]
     Dosage: 10 MG, ONCE
     Route: 048
     Dates: start: 20120101, end: 20120101

REACTIONS (2)
  - NASAL CONGESTION [None]
  - RHINORRHOEA [None]
